FAERS Safety Report 18547822 (Version 2)
Quarter: 2021Q1

REPORT INFORMATION
  Report Type: Spontaneous
  Country: JP (occurrence: JP)
  Receive Date: 20201126
  Receipt Date: 20210303
  Transmission Date: 20210419
  Serious: Yes (Hospitalization, Other)
  Sender: FDA-Public Use
  Company Number: JP-009507513-2011JPN002813J

PATIENT
  Age: 75 Year
  Sex: Male
  Weight: 47 kg

DRUGS (5)
  1. KEYTRUDA [Suspect]
     Active Substance: PEMBROLIZUMAB
     Indication: NASAL SINUS CANCER
     Dosage: 200 MILLIGRAM, EVERY 4 WEEKS
     Route: 041
     Dates: start: 20200714, end: 20200812
  2. 5?FU [Suspect]
     Active Substance: FLUOROURACIL
     Indication: NASAL SINUS CANCER
     Dosage: 1550MG X4 DAYS, EVERY 4 WEEKS
     Route: 041
     Dates: start: 20200714, end: 20200816
  3. CETUXIMAB. [Suspect]
     Active Substance: CETUXIMAB
     Dosage: 360 MILLIGRAM/ONCE
     Route: 041
     Dates: start: 20201030, end: 20201030
  4. CISPLATIN. [Suspect]
     Active Substance: CISPLATIN
     Indication: NASAL SINUS CANCER
     Dosage: 93 MILLIGRAM, EVERY 4 WEEKS
     Route: 041
     Dates: start: 20200714, end: 20200812
  5. CETUXIMAB. [Suspect]
     Active Substance: CETUXIMAB
     Indication: NASAL SINUS CANCER
     Dosage: 580 MILLIGRAM/ONCE
     Route: 041
     Dates: start: 20201023, end: 20201023

REACTIONS (2)
  - Off label use [Unknown]
  - Embolism arterial [Recovered/Resolved]

NARRATIVE: CASE EVENT DATE: 20200812
